FAERS Safety Report 6570248-9 (Version None)
Quarter: 2010Q1

REPORT INFORMATION
  Report Type: 
  Country: None (occurrence: None)
  Receive Date: 20100125
  Receipt Date: 20091202
  Transmission Date: 20100710
  Serious: Yes (Hospitalization)
  Sender: FDA-Public Use
  Company Number: 2009BI038639

PATIENT
  Age: 58 Year
  Sex: Female

DRUGS (21)
  1. TYSABRI [Suspect]
     Indication: MULTIPLE SCLEROSIS
     Dosage: 300 MG;QM;IV
     Route: 042
     Dates: start: 20090624, end: 20091028
  2. VAGIFEM [Concomitant]
  3. LIPITOR [Concomitant]
  4. NEXIUM [Concomitant]
  5. PROVIGIL [Concomitant]
  6. AMITRIPTYLINE HCL [Concomitant]
  7. VALIUM [Concomitant]
  8. SKELAXIN [Concomitant]
  9. BABY ASPIRIN [Concomitant]
  10. ZANAFLEX [Concomitant]
  11. PHENERGAN HCL [Concomitant]
  12. LIDOCAINE [Concomitant]
  13. SYNTHROID [Concomitant]
  14. MARINOL [Concomitant]
  15. ERYTHROMYCIN [Concomitant]
  16. FISH OIL [Concomitant]
  17. PATANASE [Concomitant]
  18. MECLIZINE [Concomitant]
  19. MIRALAX [Concomitant]
  20. CO-Q [Concomitant]
  21. AVONEX [Concomitant]

REACTIONS (4)
  - CHEST PAIN [None]
  - MULTIPLE SCLEROSIS RELAPSE [None]
  - MUSCLE SPASMS [None]
  - TREMOR [None]
